APPROVED DRUG PRODUCT: VRAYLAR
Active Ingredient: CARIPRAZINE HYDROCHLORIDE
Strength: EQ 0.75MG BASE
Dosage Form/Route: CAPSULE;ORAL
Application: N204370 | Product #006
Applicant: ABBVIE INC
Approved: Dec 18, 2025 | RLD: Yes | RS: No | Type: RX

PATENTS:
Patent 7737142 | Expires: Sep 17, 2029
Patent 7737142 | Expires: Sep 17, 2029
Patent 7737142 | Expires: Sep 17, 2029
Patent 7737142 | Expires: Sep 17, 2029
Patent RE49110 | Expires: Jul 16, 2029
Patent RE49110 | Expires: Jul 16, 2029
Patent RE49110 | Expires: Jul 16, 2029
Patent RE49110 | Expires: Jul 16, 2029
Patent RE47350 | Expires: Jul 16, 2029
Patent RE47350 | Expires: Jul 16, 2029
Patent RE47350 | Expires: Jul 16, 2029
Patent RE47350 | Expires: Jul 16, 2029
Patent 7943621 | Expires: Dec 20, 2028